FAERS Safety Report 12403245 (Version 1)
Quarter: 2016Q2

REPORT INFORMATION
  Report Type: Spontaneous
  Country: US (occurrence: US)
  Receive Date: 20160525
  Receipt Date: 20160525
  Transmission Date: 20160815
  Serious: No
  Sender: FDA-Public Use
  Company Number: US-TEVA-659711USA

PATIENT
  Sex: Female
  Weight: 63.56 kg

DRUGS (5)
  1. ESCITALOPRAM [Concomitant]
     Active Substance: ESCITALOPRAM OXALATE
     Indication: PRODUCT USED FOR UNKNOWN INDICATION
     Route: 065
  2. PAMELOR [Concomitant]
     Active Substance: NORTRIPTYLINE HYDROCHLORIDE
     Indication: PRODUCT USED FOR UNKNOWN INDICATION
     Route: 065
  3. NORTRIPTYLINE [Concomitant]
     Active Substance: NORTRIPTYLINE
     Indication: PRODUCT USED FOR UNKNOWN INDICATION
     Route: 065
  4. COPAXONE [Suspect]
     Active Substance: GLATIRAMER ACETATE
     Indication: MULTIPLE SCLEROSIS
     Route: 065
     Dates: start: 201604
  5. BACLOFEN. [Concomitant]
     Active Substance: BACLOFEN
     Indication: PARAESTHESIA
     Route: 065

REACTIONS (13)
  - Gait disturbance [Unknown]
  - Dry mouth [Unknown]
  - Influenza like illness [Unknown]
  - Musculoskeletal stiffness [Unknown]
  - Muscle spasms [Unknown]
  - Dysstasia [Unknown]
  - Asthenia [Unknown]
  - Nausea [Unknown]
  - Retching [Unknown]
  - Vomiting [Unknown]
  - Adverse event [Unknown]
  - Motor dysfunction [Unknown]
  - Pain [Unknown]
